FAERS Safety Report 9296374 (Version 1)
Quarter: 2013Q2

REPORT INFORMATION
  Report Type: Other
  Country: TH (occurrence: TH)
  Receive Date: 20130517
  Receipt Date: 20130517
  Transmission Date: 20140414
  Serious: Yes (Hospitalization, Other)
  Sender: FDA-Public Use
  Company Number: TH-BRISTOL-MYERS SQUIBB COMPANY-18911008

PATIENT
  Age: 62 Year
  Sex: Male

DRUGS (6)
  1. METFORMIN HCL [Suspect]
     Indication: DIABETES MELLITUS
  2. GLIPIZIDE [Suspect]
     Indication: DIABETES MELLITUS
  3. ISONIAZID [Suspect]
     Indication: PULMONARY TUBERCULOSIS
  4. RIFAMPICIN [Suspect]
     Indication: PULMONARY TUBERCULOSIS
  5. ETHAMBUTOL [Suspect]
     Indication: PULMONARY TUBERCULOSIS
     Dosage: RE-INTRODUCED 800MG
  6. AMLODIPINE [Suspect]
     Indication: HYPERTENSION

REACTIONS (2)
  - Leukocytoclastic vasculitis [Recovered/Resolved]
  - Cholestasis [Recovered/Resolved]
